FAERS Safety Report 25837101 (Version 4)
Quarter: 2025Q4

REPORT INFORMATION
  Report Type: Report from Study
  Country: EU (occurrence: EU)
  Receive Date: 20250923
  Receipt Date: 20251120
  Transmission Date: 20260118
  Serious: Yes (Other)
  Sender: TERSERA THERAPEUTICS
  Company Number: EU-AstraZeneca-CH-00946665A

PATIENT

DRUGS (7)
  1. GOSERELIN [Suspect]
     Active Substance: GOSERELIN
     Indication: Prostate cancer metastatic
     Dosage: 10.8 MILLIGRAM
     Route: 058
     Dates: start: 20220611
  2. ZOLADEX [Suspect]
     Active Substance: GOSERELIN ACETATE
     Indication: Prostate cancer metastatic
     Dosage: UNK
     Route: 065
  3. ABIRATERONE ACETATE [Suspect]
     Active Substance: ABIRATERONE ACETATE
     Indication: Prostate cancer metastatic
     Dosage: 1000 MILLIGRAM
     Route: 048
     Dates: start: 20220406
  4. Ymea [Concomitant]
     Indication: Product used for unknown indication
     Dosage: UNK
     Route: 065
     Dates: start: 20221012
  5. EUTHYROX [Concomitant]
     Active Substance: LEVOTHYROXINE SODIUM
     Indication: Product used for unknown indication
     Dosage: UNK
     Route: 065
     Dates: start: 20221013
  6. CALCIUM [Concomitant]
     Active Substance: CALCIUM
     Indication: Product used for unknown indication
     Dosage: UNK
     Route: 065
     Dates: start: 20221207
  7. PREDNISOLONE [Concomitant]
     Active Substance: PREDNISOLONE
     Indication: Product used for unknown indication
     Dosage: UNK
     Route: 065
     Dates: start: 20230303

REACTIONS (5)
  - Tertiary adrenal insufficiency [Unknown]
  - Hot flush [Unknown]
  - Anaemia [Not Recovered/Not Resolved]
  - Sleep apnoea syndrome [Unknown]
  - Hypertension [Unknown]

NARRATIVE: CASE EVENT DATE: 20250625
